FAERS Safety Report 25804779 (Version 3)
Quarter: 2025Q4

REPORT INFORMATION
  Report Type: Report from Study
  Country: EU (occurrence: EU)
  Receive Date: 20250915
  Receipt Date: 20251014
  Transmission Date: 20260117
  Serious: Yes (Other)
  Sender: NOVARTIS
  Company Number: EU-002147023-NVSC2025DE117878

PATIENT
  Age: 72 Year
  Sex: Male
  Weight: 72.8 kg

DRUGS (2)
  1. PLUVICTO [Suspect]
     Active Substance: LUTETIUM LU-177 VIPIVOTIDE TETRAXETAN
     Indication: Hormone-refractory prostate cancer
     Dosage: 7400 MBQ (BASELINE / CYCLE 1)
     Route: 042
     Dates: start: 20250602
  2. PLUVICTO [Suspect]
     Active Substance: LUTETIUM LU-177 VIPIVOTIDE TETRAXETAN
     Dosage: 7400 MBQ (CYCLE 2)
     Route: 042
     Dates: start: 20250714

REACTIONS (2)
  - Anaemia [Not Recovered/Not Resolved]
  - Haematotoxicity [Recovering/Resolving]

NARRATIVE: CASE EVENT DATE: 20250714
